FAERS Safety Report 7180207-3 (Version None)
Quarter: 2010Q4

REPORT INFORMATION
  Report Type: 
  Country: None (occurrence: None)
  Receive Date: 20101221
  Receipt Date: 20101209
  Transmission Date: 20110411
  Serious: Yes (Hospitalization)
  Sender: FDA-Public Use
  Company Number: US-NAPPMUNDI-USA-2010-0046785

PATIENT
  Sex: Male
  Weight: 81.633 kg

DRUGS (12)
  1. OXYCONTIN [Suspect]
     Indication: PAIN
     Dosage: 80 MG, TID
     Route: 048
     Dates: end: 20100914
  2. OXYCONTIN [Suspect]
     Indication: ARTHRITIS ENTEROPATHIC
  3. DILAUDID [Concomitant]
     Indication: PAIN
  4. FENTANYL-100 [Concomitant]
     Indication: PAIN
     Dosage: UNK
     Route: 062
  5. HUMIRA [Concomitant]
     Indication: PRODUCT USED FOR UNKNOWN INDICATION
  6. ZINAX [Concomitant]
     Indication: PRODUCT USED FOR UNKNOWN INDICATION
  7. METHELTRIXATE [Concomitant]
     Indication: PRODUCT USED FOR UNKNOWN INDICATION
  8. PENTASA [Concomitant]
     Indication: PRODUCT USED FOR UNKNOWN INDICATION
  9. DOXICICLIN [Concomitant]
     Indication: PRODUCT USED FOR UNKNOWN INDICATION
  10. TERIZIDONE [Concomitant]
     Indication: PRODUCT USED FOR UNKNOWN INDICATION
  11. WELLBATRIN [Concomitant]
     Indication: PRODUCT USED FOR UNKNOWN INDICATION
  12. PREDNISONE [Concomitant]
     Indication: PRODUCT USED FOR UNKNOWN INDICATION

REACTIONS (3)
  - HYPERSENSITIVITY [None]
  - PRODUCT FORMULATION ISSUE [None]
  - SKIN LESION [None]
